FAERS Safety Report 11785742 (Version 1)
Quarter: 2015Q4

REPORT INFORMATION
  Report Type: Spontaneous
  Country: US (occurrence: None)
  Receive Date: 20151125
  Receipt Date: 20151125
  Transmission Date: 20160305
  Serious: Yes (Hospitalization)
  Sender: FDA-Public Use
  Company Number: None

PATIENT
  Age: 64 Year
  Sex: Female
  Weight: 110.68 kg

DRUGS (11)
  1. MORPHINE [Suspect]
     Active Substance: MORPHINE
     Indication: PRODUCT USED FOR UNKNOWN INDICATION
     Route: 042
     Dates: start: 20151123, end: 20151123
  2. TICAGRELOR [Concomitant]
     Active Substance: TICAGRELOR
  3. IMDUR [Concomitant]
     Active Substance: ISOSORBIDE MONONITRATE
  4. SOTALOL. [Concomitant]
     Active Substance: SOTALOL
  5. PANTOPRAZOLE [Concomitant]
     Active Substance: PANTOPRAZOLE SODIUM
  6. ALLOPURINOL. [Concomitant]
     Active Substance: ALLOPURINOL
  7. COZAAR [Concomitant]
     Active Substance: LOSARTAN POTASSIUM
  8. METHYLNALTREXONE [Suspect]
     Active Substance: METHYLNALTREXONE
     Indication: PRODUCT USED FOR UNKNOWN INDICATION
     Route: 042
     Dates: start: 20151123, end: 20151123
  9. NITROGLYCERIN. [Concomitant]
     Active Substance: NITROGLYCERIN
  10. ASPIRIN. [Concomitant]
     Active Substance: ASPIRIN
  11. ATORVASTATIN [Concomitant]
     Active Substance: ATORVASTATIN

REACTIONS (3)
  - Nausea [None]
  - Vomiting [None]
  - Blood pressure increased [None]

NARRATIVE: CASE EVENT DATE: 20151123
